FAERS Safety Report 5692652-3 (Version None)
Quarter: 2008Q2

REPORT INFORMATION
  Report Type: 
  Country: None (occurrence: None)
  Receive Date: 20080401
  Receipt Date: 20080318
  Transmission Date: 20081010
  Serious: Yes (Other)
  Sender: FDA-Public Use
  Company Number: 2007BI026243

PATIENT
  Age: 58 Year
  Sex: Female

DRUGS (2)
  1. AVONEX [Suspect]
     Indication: DRUG USE FOR UNKNOWN INDICATION
     Dosage: UNKNOWN INDICATION
  2. STEROIDS [Concomitant]

REACTIONS (12)
  - ALANINE AMINOTRANSFERASE INCREASED [None]
  - ASPARTATE AMINOTRANSFERASE INCREASED [None]
  - GLYCOSYLATED HAEMOGLOBIN INCREASED [None]
  - HEADACHE [None]
  - INFLUENZA LIKE ILLNESS [None]
  - LIVER DISORDER [None]
  - LIVER FUNCTION TEST ABNORMAL [None]
  - MULTIPLE SCLEROSIS RELAPSE [None]
  - NAUSEA [None]
  - PROTEINURIA [None]
  - TYPE 2 DIABETES MELLITUS [None]
  - ULCER [None]
